FAERS Safety Report 10372056 (Version 3)
Quarter: 2014Q3

REPORT INFORMATION
  Report Type: Report from Study
  Country: ES (occurrence: ES)
  Receive Date: 20140808
  Receipt Date: 20140922
  Transmission Date: 20150326
  Serious: Yes (Hospitalization)
  Sender: FDA-Public Use
  Company Number: ES-GILEAD-2014-0107816

PATIENT
  Age: 74 Year
  Sex: Female

DRUGS (9)
  1. NATECAL [Concomitant]
     Active Substance: CALCIUM CARBONATE\CHOLECALCIFEROL
  2. ARZERRA [Suspect]
     Active Substance: OFATUMUMAB
     Dosage: 1000 MG, Q4WK
     Route: 042
     Dates: start: 20130902, end: 20131125
  3. VALACYCLOVIR [Concomitant]
     Active Substance: VALACYCLOVIR HYDROCHLORIDE
  4. ARZERRA [Suspect]
     Active Substance: OFATUMUMAB
     Indication: CHRONIC LYMPHOCYTIC LEUKAEMIA
     Dosage: 300 MG, UNK
     Route: 042
     Dates: start: 20130617, end: 20130617
  5. LIPLAT [Concomitant]
  6. ARZERRA [Suspect]
     Active Substance: OFATUMUMAB
     Dosage: 1000 MG, Q1WK
     Route: 042
     Dates: start: 20130624, end: 20130805
  7. PARIET [Concomitant]
     Active Substance: RABEPRAZOLE SODIUM
  8. IDELALISIB [Suspect]
     Active Substance: IDELALISIB
     Indication: CHRONIC LYMPHOCYTIC LEUKAEMIA
     Dosage: 150 MG, BID
     Route: 048
     Dates: start: 20140617
  9. SINTROM [Concomitant]
     Active Substance: ACENOCOUMAROL

REACTIONS (2)
  - Urinary tract infection [Recovered/Resolved]
  - Dyspnoea [Unknown]

NARRATIVE: CASE EVENT DATE: 20140630
